FAERS Safety Report 19868447 (Version 1)
Quarter: 2021Q3

REPORT INFORMATION
  Report Type: Report from Study
  Country: ES (occurrence: ES)
  Receive Date: 20210921
  Receipt Date: 20210921
  Transmission Date: 20211014
  Serious: Yes (Hospitalization)
  Sender: FDA-Public Use
  Company Number: ES-TEVA-2021-ES-1954462

PATIENT
  Age: 80 Year
  Sex: Male

DRUGS (4)
  1. CLOPIDOGREL [Suspect]
     Active Substance: CLOPIDOGREL BISULFATE
     Dosage: 1 DOSAGE FORMS DAILY;
     Route: 048
     Dates: start: 20201210
  2. QUETIAPINA (1136A) [Suspect]
     Active Substance: QUETIAPINE
     Dosage: 25 MILLIGRAM DAILY; QUETIAPINE 25MG, 60 TABLETS (561650)
     Route: 048
     Dates: start: 20201218
  3. CLOMETIAZOL (631A) [Suspect]
     Active Substance: CLOMETHIAZOLE
     Dosage: 3 DOSAGE FORMS DAILY; DISTRANEURINE 30 CAPSULES (654161)
     Route: 048
     Dates: start: 20201210, end: 20210107
  4. PITAVASTATINA CINFA 2 MG COMPRIMIDOS RECUBIERTOS CON PELICULA EFG, 28 [Suspect]
     Active Substance: PITAVASTATIN
     Dosage: 1 DOSAGE FORMS DAILY;
     Route: 048
     Dates: start: 20201218

REACTIONS (2)
  - Drug-induced liver injury [Recovered/Resolved]
  - Jaundice [Recovered/Resolved]

NARRATIVE: CASE EVENT DATE: 20210116
